FAERS Safety Report 6765218-1 (Version None)
Quarter: 2010Q2

REPORT INFORMATION
  Report Type: 
  Country: None (occurrence: None)
  Receive Date: 20100610
  Receipt Date: 20100610
  Transmission Date: 20101027
  Serious: Yes (Hospitalization)
  Sender: FDA-Public Use
  Company Number: None

PATIENT
  Age: 4 Year
  Sex: Male
  Weight: 18.1439 kg

DRUGS (2)
  1. SINGULAIR [Suspect]
     Indication: DYSPNOEA
     Dosage: 4MG 1 DAILY PO
     Route: 048
     Dates: start: 20020901, end: 20030315
  2. SINGULAIR [Suspect]
     Indication: HYPERSENSITIVITY
     Dosage: 4MG 1 DAILY PO
     Route: 048
     Dates: start: 20020901, end: 20030315

REACTIONS (2)
  - COLLAPSE OF LUNG [None]
  - PNEUMONIA [None]
